FAERS Safety Report 7166270-4 (Version None)
Quarter: 2010Q4

REPORT INFORMATION
  Report Type: 
  Country: None (occurrence: None)
  Receive Date: 20101216
  Receipt Date: 20101209
  Transmission Date: 20110411
  Serious: No
  Sender: FDA-Public Use
  Company Number: US-JNJFOC-20101204580

PATIENT
  Sex: Male
  Weight: 102.06 kg

DRUGS (1)
  1. FENTANYL [Suspect]
     Indication: BACK PAIN
     Route: 062

REACTIONS (1)
  - DRUG ADMINISTERED AT INAPPROPRIATE SITE [None]
